FAERS Safety Report 7773745-3 (Version None)
Quarter: 2011Q3

REPORT INFORMATION
  Report Type: 
  Country: None (occurrence: None)
  Receive Date: 20110921
  Receipt Date: 20110907
  Transmission Date: 20111222
  Serious: No
  Sender: FDA-Public Use
  Company Number: NGX_00582_2011

PATIENT
  Sex: Female

DRUGS (9)
  1. QUTENZA [Suspect]
     Indication: NEUROPATHY PERIPHERAL
     Dosage: 2 DF,  [PATCH] TOPICAL
     Route: 061
     Dates: start: 20110822, end: 20110822
  2. FENTANYL CITRATE [Concomitant]
  3. CLONAZEPAM [Concomitant]
  4. OXYCONTIN [Concomitant]
  5. AMITRIPTYLINE HCL [Concomitant]
  6. EMLA [Concomitant]
  7. IXEL /01054401/ [Concomitant]
  8. LYRICA [Concomitant]
  9. TRILEPTAL [Concomitant]

REACTIONS (3)
  - APPLICATION SITE ERYTHEMA [None]
  - APPLICATION SITE PAIN [None]
  - ANXIETY [None]
